FAERS Safety Report 4808885-1 (Version None)
Quarter: 2005Q4

REPORT INFORMATION
  Report Type: 
  Country: None (occurrence: None)
  Receive Date: 20051021
  Receipt Date: 20021018
  Transmission Date: 20060501
  Serious: No
  Sender: FDA-Public Use
  Company Number: DE_021009890

PATIENT
  Age: 30 Year
  Sex: Male

DRUGS (1)
  1. ZYPREXA [Suspect]
     Indication: SCHIZOPHRENIA
     Dosage: 20 MG/DAY
     Dates: start: 20020902

REACTIONS (1)
  - EOSINOPHILIA [None]
